FAERS Safety Report 13290670 (Version 1)
Quarter: 2017Q1

REPORT INFORMATION
  Report Type: Spontaneous
  Country: US (occurrence: US)
  Receive Date: 20170302
  Receipt Date: 20170302
  Transmission Date: 20170428
  Serious: Yes (Other)
  Sender: FDA-Public Use
  Company Number: US-SA-2017SA034391

PATIENT
  Age: 52 Year
  Sex: Female

DRUGS (12)
  1. RIFAMPICIN [Suspect]
     Active Substance: RIFAMPIN
     Indication: LEPROMATOUS LEPROSY
     Route: 065
  2. NATALIZUMAB [Concomitant]
     Active Substance: NATALIZUMAB
  3. PREDNISONE. [Suspect]
     Active Substance: PREDNISONE
     Indication: TYPE 2 LEPRA REACTION
     Route: 065
  4. CLARITHROMYCIN. [Suspect]
     Active Substance: CLARITHROMYCIN
     Indication: LEPROMATOUS LEPROSY
     Route: 065
  5. METHOTREXATE. [Suspect]
     Active Substance: METHOTREXATE
     Indication: TYPE 2 LEPRA REACTION
     Route: 065
  6. MINOCYCLINE HYDROCHLORIDE. [Suspect]
     Active Substance: MINOCYCLINE HYDROCHLORIDE
     Indication: LEPROMATOUS LEPROSY
     Route: 065
  7. MITOXANTRONE [Concomitant]
     Active Substance: MITOXANTRONE HYDROCHLORIDE
  8. RIFAMPICIN [Suspect]
     Active Substance: RIFAMPIN
     Indication: LEPROMATOUS LEPROSY
     Route: 065
  9. METHOTREXATE. [Suspect]
     Active Substance: METHOTREXATE
     Indication: TYPE 2 LEPRA REACTION
     Route: 065
  10. GLATIRAMER ACETATE. [Concomitant]
     Active Substance: GLATIRAMER ACETATE
  11. FINGOLIMOD [Concomitant]
     Active Substance: FINGOLIMOD
  12. PREDNISONE. [Suspect]
     Active Substance: PREDNISONE
     Indication: TYPE 2 LEPRA REACTION
     Route: 065

REACTIONS (3)
  - Condition aggravated [Unknown]
  - Mood altered [Unknown]
  - Type 2 lepra reaction [Unknown]
